FAERS Safety Report 8822975 (Version 1)
Quarter: 2012Q4

REPORT INFORMATION
  Report Type: Report from Study
  Country: US (occurrence: US)
  Receive Date: 20121003
  Receipt Date: 20121003
  Transmission Date: 20130627
  Serious: Yes (Hospitalization)
  Sender: FDA-Public Use
  Company Number: US-JNJFOC-20101106283

PATIENT
  Age: 43 Year
  Sex: Male
  Weight: 92.1 kg

DRUGS (4)
  1. USTEKINUMAB [Suspect]
     Indication: SARCOIDOSIS
     Route: 058
     Dates: start: 20101008
  2. USTEKINUMAB [Suspect]
     Indication: SARCOIDOSIS
     Route: 058
     Dates: start: 20100618
  3. HYDROXYCHLOROQUINE [Concomitant]
     Indication: SARCOIDOSIS
     Route: 048
  4. PREDNISONE [Concomitant]
     Indication: SARCOIDOSIS
     Route: 048
     Dates: start: 20101006

REACTIONS (1)
  - Psychiatric evaluation [Recovering/Resolving]
